FAERS Safety Report 9431899 (Version 1)
Quarter: 2013Q3

REPORT INFORMATION
  Report Type: Spontaneous
  Country: US (occurrence: US)
  Receive Date: 20130731
  Receipt Date: 20130731
  Transmission Date: 20140515
  Serious: Yes (Death)
  Sender: FDA-Public Use
  Company Number: PHHY2013US080553

PATIENT
  Age: 29 Year
  Sex: Female

DRUGS (2)
  1. CARBAMAZEPINE [Suspect]
     Indication: ABNORMAL BEHAVIOUR
     Dosage: UNK UKN, UNK
  2. CARBAMAZEPINE [Suspect]
     Dosage: 400 MG, BID

REACTIONS (3)
  - Deep vein thrombosis [Fatal]
  - Pulmonary embolism [Fatal]
  - Drug ineffective [Unknown]
